FAERS Safety Report 4933244-0 (Version None)
Quarter: 2006Q1

REPORT INFORMATION
  Report Type: 
  Country: None (occurrence: None)
  Receive Date: 20060306
  Receipt Date: 20050412
  Transmission Date: 20060701
  Serious: Yes (Death, Hospitalization, Other)
  Sender: FDA-Public Use
  Company Number: US-MERCK-0504USA02070

PATIENT
  Age: 87 Year
  Sex: Female
  Weight: 73 kg

DRUGS (11)
  1. VIOXX [Suspect]
     Indication: ARTHRITIS
     Route: 048
     Dates: start: 20000116, end: 20010512
  2. ASPIRIN [Concomitant]
     Route: 065
  3. DARVOCET-N 50 [Concomitant]
     Route: 065
  4. ECOTRIN [Concomitant]
     Route: 065
  5. COZAAR [Concomitant]
     Route: 065
  6. PREVACID [Concomitant]
     Route: 065
  7. IRON (UNSPECIFIED) [Concomitant]
     Route: 065
  8. PAXIL [Concomitant]
     Route: 065
  9. POTASSIUM (UNSPECIFIED) [Concomitant]
     Route: 065
  10. LASIX [Concomitant]
     Route: 065
  11. DITROPAN XL [Concomitant]
     Route: 065

REACTIONS (22)
  - APNOEA [None]
  - ASPIRATION [None]
  - ATELECTASIS [None]
  - CARDIAC FAILURE CONGESTIVE [None]
  - CEREBROVASCULAR ACCIDENT [None]
  - CHOLECYSTITIS ACUTE [None]
  - CHOLECYSTITIS INFECTIVE [None]
  - CLOSTRIDIUM COLITIS [None]
  - CORONARY ARTERY DISEASE [None]
  - DEATH [None]
  - DECUBITUS ULCER [None]
  - DIABETES MELLITUS NON-INSULIN-DEPENDENT [None]
  - HYPERKALAEMIA [None]
  - HYPERVOLAEMIA [None]
  - HYPOTENSION [None]
  - HYPOXIA [None]
  - PNEUMONIA ASPIRATION [None]
  - PULMONARY OEDEMA [None]
  - RESPIRATORY FAILURE [None]
  - STAPHYLOCOCCAL INFECTION [None]
  - URINARY TRACT INFECTION [None]
  - VENTRICULAR EXTRASYSTOLES [None]
